FAERS Safety Report 4902707-6 (Version None)
Quarter: 2006Q1

REPORT INFORMATION
  Report Type: 
  Country: None (occurrence: None)
  Receive Date: 20060207
  Receipt Date: 20060123
  Transmission Date: 20060701
  Serious: Yes (Hospitalization)
  Sender: FDA-Public Use
  Company Number: 2006SE00537

PATIENT
  Age: 81 Year
  Sex: Female

DRUGS (7)
  1. NEXIUM GASTRO-RESISTANT TABLET 20 MG [Suspect]
     Route: 048
     Dates: end: 20051227
  2. STILNOCT [Suspect]
     Dates: end: 20051225
  3. ACETAMINOPHEN [Concomitant]
  4. BETOLVEX [Concomitant]
  5. TROMBYL [Concomitant]
  6. LAKTULOS [Concomitant]
     Route: 048
  7. KALCIPOS-D [Concomitant]

REACTIONS (5)
  - CONFUSIONAL STATE [None]
  - DYSPHEMIA [None]
  - HALLUCINATION [None]
  - MUSCLE SPASMS [None]
  - PETIT MAL EPILEPSY [None]
